FAERS Safety Report 7368404-5 (Version None)
Quarter: 2011Q1

REPORT INFORMATION
  Report Type: 
  Country: None (occurrence: None)
  Receive Date: 20110311
  Receipt Date: 20110224
  Transmission Date: 20110831
  Serious: Yes (Hospitalization)
  Sender: FDA-Public Use
  Company Number: 8052716

PATIENT
  Sex: Female
  Weight: 65.7716 kg

DRUGS (2)
  1. IMURAN [Suspect]
     Indication: CROHN'S DISEASE
     Dates: end: 20091022
  2. CERTOLIZUMAB PEGOL [Suspect]
     Indication: CROHN'S DISEASE
     Dosage: (400 MG 1X/2 WEEKS SUBCUTANEOUS)
     Route: 058
     Dates: start: 20090610, end: 20090816

REACTIONS (1)
  - URINARY TRACT INFECTION [None]
